FAERS Safety Report 4581188-9 (Version None)
Quarter: 2005Q1

REPORT INFORMATION
  Report Type: 
  Country: None (occurrence: None)
  Receive Date: 20050214
  Receipt Date: 20040826
  Transmission Date: 20050727
  Serious: Yes (Other)
  Sender: FDA-Public Use
  Company Number: US-GLAXOSMITHKLINE-A0523638A

PATIENT
  Age: 30 Year
  Sex: Male
  Weight: 77.3 kg

DRUGS (2)
  1. LAMICTAL [Suspect]
     Indication: BIPOLAR DISORDER
     Dosage: 25MG TWICE PER DAY
     Route: 048
     Dates: start: 20030801
  2. VALPROATE [Concomitant]

REACTIONS (2)
  - AMNESIA [None]
  - HYPOMANIA [None]
